FAERS Safety Report 17741303 (Version 3)
Quarter: 2021Q3

REPORT INFORMATION
  Report Type: Report from Study
  Country: CO (occurrence: CO)
  Receive Date: 20200504
  Receipt Date: 20210813
  Transmission Date: 20211014
  Serious: Yes (Other)
  Sender: FDA-Public Use
  Company Number: NVSC2020CO097282

PATIENT
  Age: 9 Year
  Sex: Male
  Weight: 21 kg

DRUGS (2)
  1. OMNITROPE [Suspect]
     Active Substance: SOMATROPIN
     Dosage: UNK, QD
     Route: 058
  2. OMNITROPE [Suspect]
     Active Substance: SOMATROPIN
     Indication: GROWTH HORMONE DEFICIENCY
     Dosage: 0.5 MG, QD (STRENGTH 10MG+15MG/1.5ML)
     Route: 058
     Dates: start: 20190522

REACTIONS (12)
  - Incorrect dose administered [Unknown]
  - Growth disorder [Unknown]
  - Kidney infection [Unknown]
  - Product dispensing error [Unknown]
  - Drug administered in wrong device [Not Recovered/Not Resolved]
  - Device malfunction [Unknown]
  - Vomiting [Unknown]
  - Underweight [Unknown]
  - Headache [Unknown]
  - Acarodermatitis [Unknown]
  - Weight abnormal [Unknown]
  - Dizziness [Unknown]

NARRATIVE: CASE EVENT DATE: 20200405
